FAERS Safety Report 25798634 (Version 1)
Quarter: 2025Q3

REPORT INFORMATION
  Report Type: Spontaneous
  Country: EU (occurrence: EU)
  Receive Date: 20250913
  Receipt Date: 20250913
  Transmission Date: 20251021
  Serious: Yes (Hospitalization, Other)
  Sender: AUROBINDO
  Company Number: EU-AUROBINDO-AUR-APL-2021-007588

PATIENT
  Age: 47 Year
  Sex: Male

DRUGS (10)
  1. EPHEDRINE [Suspect]
     Active Substance: EPHEDRINE
     Indication: Cardiac arrest
     Route: 065
  2. EPHEDRINE [Suspect]
     Active Substance: EPHEDRINE
     Route: 065
  3. EPHEDRINE [Suspect]
     Active Substance: EPHEDRINE
     Route: 065
  4. METHAMPHETAMINE [Suspect]
     Active Substance: METHAMPHETAMINE
     Indication: Product used for unknown indication
     Route: 065
  5. TENAMFETAMINE [Suspect]
     Active Substance: TENAMFETAMINE
     Indication: Product used for unknown indication
     Route: 065
  6. BENZOYLECGONINE [Suspect]
     Active Substance: BENZOYLECGONINE
     Indication: Product used for unknown indication
     Route: 065
  7. MORPHINE [Suspect]
     Active Substance: MORPHINE
     Indication: Product used for unknown indication
     Route: 065
  8. TENAMFETAMINE [Suspect]
     Active Substance: TENAMFETAMINE
     Indication: Product used for unknown indication
     Route: 065
  9. DRONABINOL [Suspect]
     Active Substance: DRONABINOL
     Indication: Product used for unknown indication
     Route: 065
  10. CANNABINOL [Concomitant]
     Active Substance: CANNABINOL
     Indication: Product used for unknown indication
     Route: 065

REACTIONS (11)
  - Gastric pneumatosis [Recovered/Resolved]
  - Gastrointestinal injury [Recovered/Resolved]
  - Emphysema [Recovered/Resolved]
  - Mucosal necrosis [Recovered/Resolved]
  - Inflammation [Recovered/Resolved]
  - Disseminated intravascular coagulation [Recovered/Resolved]
  - Hyperpyrexia [Recovered/Resolved]
  - Encephalopathy [Recovered/Resolved]
  - Vasoconstriction [Recovered/Resolved]
  - Ischaemia [Recovered/Resolved]
  - Multiple organ dysfunction syndrome [Recovered/Resolved]
